FAERS Safety Report 7942552 (Version 4)
Quarter: 2013Q1

REPORT INFORMATION
  Report Type: Spontaneous
  Country: US (occurrence: US)
  Receive Date: 20110512
  Receipt Date: 20130301
  Transmission Date: 20140127
  Serious: Yes (Disabling, Other)
  Sender: FDA-Public Use
  Company Number: US-ASTRAZENECA-2011SE26326

PATIENT
  Age: 62 Year
  Sex: Female

DRUGS (2)
  1. CRESTOR [Suspect]
     Route: 048
  2. SYMBICORT PMDI [Suspect]
     Dosage: 160/4.5 MG, UNKNOWN
     Route: 055

REACTIONS (5)
  - Blindness [Unknown]
  - Transient ischaemic attack [Unknown]
  - Eye disorder [Unknown]
  - Asthma [Unknown]
  - Malaise [Unknown]
